FAERS Safety Report 7036286-7 (Version None)
Quarter: 2010Q4

REPORT INFORMATION
  Report Type: 
  Country: None (occurrence: None)
  Receive Date: 20101008
  Receipt Date: 20100930
  Transmission Date: 20110411
  Serious: Yes (Other)
  Sender: FDA-Public Use
  Company Number: US-AMGEN-QUU439234

PATIENT
  Sex: Female
  Weight: 81.3 kg

DRUGS (8)
  1. NPLATE [Suspect]
     Indication: IDIOPATHIC THROMBOCYTOPENIC PURPURA
     Route: 058
     Dates: start: 20090702, end: 20100209
  2. CORTICOSTEROIDS [Concomitant]
     Dates: start: 20090716, end: 20090813
  3. IMMU-G [Concomitant]
     Dates: start: 20090616, end: 20090626
  4. DOCUSATE [Concomitant]
     Route: 048
  5. FERROUS SULFATE [Concomitant]
     Route: 048
  6. HUMULIN N [Concomitant]
     Route: 058
  7. LANTUS [Concomitant]
     Route: 058
  8. PREVACID [Concomitant]
     Route: 048

REACTIONS (2)
  - BIOPSY BONE MARROW ABNORMAL [None]
  - LEUKOPENIA [None]
